FAERS Safety Report 7404255-0 (Version None)
Quarter: 2011Q1

REPORT INFORMATION
  Report Type: 
  Country: None (occurrence: None)
  Receive Date: 20110330
  Receipt Date: 20110315
  Transmission Date: 20110831
  Serious: Yes (Hospitalization, Other)
  Sender: FDA-Public Use
  Company Number: AMAG201100038

PATIENT
  Age: 55 Year
  Sex: Male
  Weight: 93.4 kg

DRUGS (21)
  1. LANTUS [Concomitant]
  2. OMEPRAZOLE [Concomitant]
  3. FEBUXOSTAT (ULORIC) [Concomitant]
  4. ALBUTEROL SULFATE AUTOHALER [Concomitant]
  5. DUONEB [Concomitant]
  6. POTASSIUM CITRATE [Concomitant]
  7. PROCRIT [Concomitant]
  8. VITAMIN D [Concomitant]
  9. ZEMPLAR [Concomitant]
  10. ATARAX [Concomitant]
  11. SINGULAIR [Concomitant]
  12. FOLIC ACID [Concomitant]
  13. FERROUS SULFATE TAB [Concomitant]
  14. FERAHEME [Suspect]
     Indication: IRON DEFICIENCY ANAEMIA
     Dosage: 510 MG, SINGLE, INTRAVENOUS
     Route: 042
     Dates: start: 20110216, end: 20110216
  15. FERAHEME [Suspect]
     Indication: RENAL FAILURE CHRONIC
     Dosage: 510 MG, SINGLE, INTRAVENOUS
     Route: 042
     Dates: start: 20110216, end: 20110216
  16. AIMTRIPTYLINE (AMITRIPTYLINE HYDROCHLORIDE) [Concomitant]
  17. CLONAZEPAM [Concomitant]
  18. THEOPHYLLINE [Concomitant]
  19. ADVAIR HFA [Concomitant]
  20. METHADONE HCL [Concomitant]
  21. METOPROLOL TARTRATE [Concomitant]

REACTIONS (13)
  - RENAL FAILURE ACUTE [None]
  - PNEUMONIA [None]
  - HYPOPHOSPHATAEMIA [None]
  - ARTERIOSCLEROSIS CORONARY ARTERY [None]
  - MENTAL STATUS CHANGES [None]
  - RIB FRACTURE [None]
  - ATELECTASIS [None]
  - NEPHROLITHIASIS [None]
  - HYPERGLYCAEMIA [None]
  - CARDIOMEGALY [None]
  - PAIN [None]
  - HYPERTENSION [None]
  - HYPOMAGNESAEMIA [None]
